FAERS Safety Report 5948285-4 (Version None)
Quarter: 2008Q4

REPORT INFORMATION
  Report Type: 
  Country: None (occurrence: None)
  Receive Date: 20081111
  Receipt Date: 20081104
  Transmission Date: 20090506
  Serious: Yes (Congenital Anomaly)
  Sender: FDA-Public Use
  Company Number: JP-ELI_LILLY_AND_COMPANY-JP200711001044

PATIENT

DRUGS (3)
  1. HUMALOG [Suspect]
     Indication: IMPAIRED INSULIN SECRETION
     Dosage: BASAL: 0.6U/HR (22:00-4:00), 1.0U/HR (4:00-10:00), 0.9U/HR (10:00-22:00), BORUS: 8U-8U-8U
     Route: 064
     Dates: start: 20050601
  2. HUMALOG [Suspect]
     Dosage: BASAL: 1.2U/HR (10:00-4:00), 1.5U/HR (4:00-10:00), BORUS: 15U-15U-15U
     Route: 064
  3. HUMALOG [Suspect]
     Dosage: BASAL: 0.8U/HR (11:00-23:00), 0.7U/HR (23:00-4:00), 1.2U/HR (4:00-23:000), BORUS: 15U-13U-13U
     Route: 064

REACTIONS (2)
  - DRUG EXPOSURE DURING PREGNANCY [None]
  - HYPOSPADIAS [None]
